FAERS Safety Report 10735500 (Version 1)
Quarter: 2015Q1

REPORT INFORMATION
  Report Type: Spontaneous
  Country: US (occurrence: US)
  Receive Date: 20150126
  Receipt Date: 20150126
  Transmission Date: 20150721
  Serious: No
  Sender: FDA-Public Use
  Company Number: US-009507513-1501USA009578

PATIENT
  Sex: Female

DRUGS (1)
  1. DIPROLENE AF [Suspect]
     Active Substance: BETAMETHASONE DIPROPIONATE
     Dosage: UNK

REACTIONS (2)
  - No adverse event [Unknown]
  - Expired product administered [Unknown]
